FAERS Safety Report 5741013-7 (Version None)
Quarter: 2008Q2

REPORT INFORMATION
  Report Type: 
  Country: None (occurrence: None)
  Receive Date: 20080516
  Receipt Date: 20080509
  Transmission Date: 20081010
  Serious: Yes (Hospitalization, Other)
  Sender: FDA-Public Use
  Company Number: PHEH2006US03444

PATIENT
  Age: 57 Year
  Sex: Male
  Weight: 87.528 kg

DRUGS (15)
  1. AREDIA [Suspect]
     Indication: METASTASES TO BONE
     Dosage: 90 MG, QMO
     Route: 042
     Dates: start: 20010301
  2. ZOMETA [Suspect]
     Indication: METASTASES TO BONE
     Dosage: 4 MG IV Q4W
     Route: 042
     Dates: start: 20020429, end: 20030317
  3. TAXOTERE [Concomitant]
     Dates: start: 20001215
  4. TAXOL [Concomitant]
  5. DIFLUCAN [Concomitant]
     Dates: start: 20040601
  6. MS CONTIN [Concomitant]
     Indication: PAIN
     Dosage: 200 MG, TID
     Route: 048
  7. LOVENOX [Concomitant]
  8. MORPHINE SULFATE [Concomitant]
  9. ZOLOFT [Concomitant]
  10. PRILOSEC [Concomitant]
  11. DURAGESIC-100 [Concomitant]
     Indication: PAIN
     Dosage: 75 UG, UNK
     Route: 062
  12. DILAUDID [Concomitant]
     Indication: PAIN
     Dosage: 4 MG, Q2H PRN
  13. FENTANYL CITRATE [Concomitant]
     Indication: PAIN
     Dosage: 75 UG, UNK
     Route: 062
  14. ACTIQ [Concomitant]
     Indication: PAIN
  15. PROCRIT [Concomitant]

REACTIONS (49)
  - ACTINOMYCOSIS [None]
  - ALVEOLAR OSTEITIS [None]
  - ARTIFICIAL CROWN PROCEDURE [None]
  - ASPIRATION PLEURAL CAVITY [None]
  - BIOPSY [None]
  - BLOOD CREATININE INCREASED [None]
  - BONE DEBRIDEMENT [None]
  - BONE DISORDER [None]
  - BREATH ODOUR [None]
  - BRONCHITIS [None]
  - CHRONIC OBSTRUCTIVE PULMONARY DISEASE [None]
  - DEEP VEIN THROMBOSIS [None]
  - DENTAL OPERATION [None]
  - DIARRHOEA [None]
  - DISEASE PROGRESSION [None]
  - DYSGEUSIA [None]
  - DYSPNOEA [None]
  - EATING DISORDER [None]
  - EMPHYSEMA [None]
  - FUNGAL INFECTION [None]
  - HAEMATOMA [None]
  - HERNIA REPAIR [None]
  - HYPERTENSION [None]
  - IMPAIRED HEALING [None]
  - INCISIONAL DRAINAGE [None]
  - INFECTION [None]
  - INFLAMMATION [None]
  - MALIGNANT PLEURAL EFFUSION [None]
  - METASTATIC NEOPLASM [None]
  - OSTEOMYELITIS [None]
  - OSTEONECROSIS [None]
  - PAIN IN EXTREMITY [None]
  - PAIN IN JAW [None]
  - PERIODONTAL OPERATION [None]
  - PLEURAL EFFUSION [None]
  - PNEUMONIA [None]
  - POOR PERSONAL HYGIENE [None]
  - PULMONARY EMBOLISM [None]
  - PURULENCE [None]
  - RENAL FAILURE [None]
  - SINUS DISORDER [None]
  - SUBCUTANEOUS ABSCESS [None]
  - SWELLING [None]
  - THORACOTOMY [None]
  - THROMBOSIS [None]
  - TOOTH EXTRACTION [None]
  - TOOTHACHE [None]
  - VASCULAR OPERATION [None]
  - VENA CAVA FILTER INSERTION [None]
